FAERS Safety Report 25704551 (Version 1)
Quarter: 2025Q3

REPORT INFORMATION
  Report Type: Spontaneous
  Country: EU (occurrence: EU)
  Receive Date: 20250820
  Receipt Date: 20250820
  Transmission Date: 20251021
  Serious: Yes (Hospitalization)
  Sender: CHEPLAPHARM
  Company Number: None

PATIENT
  Age: 67 Year
  Sex: Male

DRUGS (12)
  1. QUETIAPINE [Suspect]
     Active Substance: QUETIAPINE
     Indication: Euphoric mood
     Dosage: DAILY DOSE: 50 MILLIGRAM
     Dates: start: 20250621, end: 20250622
  2. QUETIAPINE [Suspect]
     Active Substance: QUETIAPINE
     Indication: Euphoric mood
     Dosage: DAILY DOSE: 100 MILLIGRAM
     Dates: start: 20250622, end: 20250623
  3. QUETIAPINE [Suspect]
     Active Substance: QUETIAPINE
     Indication: Euphoric mood
     Dosage: DAILY DOSE: 200 MILLIGRAM
     Dates: start: 20250623, end: 20250626
  4. QUETIAPINE [Suspect]
     Active Substance: QUETIAPINE
     Indication: Euphoric mood
     Dosage: DAILY DOSE: 300 MILLIGRAM
     Dates: start: 20250626, end: 20250627
  5. QUETIAPINE [Suspect]
     Active Substance: QUETIAPINE
     Indication: Euphoric mood
     Dosage: DAILY DOSE: 400 MILLIGRAM
     Dates: start: 20250627, end: 20250708
  6. BROMAZEPAM [Suspect]
     Active Substance: BROMAZEPAM
  7. PAROXETINE HYDROCHLORIDE [Suspect]
     Active Substance: PAROXETINE HYDROCHLORIDE
     Indication: Euphoric mood
  8. TRIMEPRAZINE [Suspect]
     Active Substance: TRIMEPRAZINE
     Indication: Euphoric mood
  9. ARIPIPRAZOLE [Concomitant]
     Active Substance: ARIPIPRAZOLE
     Dosage: DAILY DOSE: 5 MILLIGRAM
     Dates: start: 20250710
  10. ARIPIPRAZOLE [Concomitant]
     Active Substance: ARIPIPRAZOLE
     Dosage: INCREASED?DAILY DOSE: 10 MILLIGRAM
     Dates: start: 20250713
  11. DESLORATADINE [Concomitant]
     Active Substance: DESLORATADINE
     Dosage: DAILY DOSE: 5 MILLIGRAM
     Dates: start: 20250710
  12. Dexeryl [Concomitant]
     Dates: start: 20250710

REACTIONS (5)
  - Rash maculo-papular [Recovered/Resolved]
  - Pharyngitis [Unknown]
  - Vomiting [Unknown]
  - Hypertension [Unknown]
  - Off label use [Recovered/Resolved]

NARRATIVE: CASE EVENT DATE: 20250621
